FAERS Safety Report 7772950-X (Version None)
Quarter: 2011Q3

REPORT INFORMATION
  Report Type: 
  Country: None (occurrence: None)
  Receive Date: 20110922
  Receipt Date: 20101104
  Transmission Date: 20111222
  Serious: Yes (Hospitalization)
  Sender: FDA-Public Use
  Company Number: US-ASTRAZENECA-2010SE52697

PATIENT
  Sex: Male
  Weight: 68 kg

DRUGS (2)
  1. SEROQUEL XR [Suspect]
     Route: 048
  2. SEROQUEL XR [Suspect]
     Dosage: 20 TO 30 TABLETS OF SEROQUEL XR
     Route: 048
     Dates: start: 20101031

REACTIONS (1)
  - OVERDOSE [None]
